FAERS Safety Report 23357335 (Version 1)
Quarter: 2024Q1

REPORT INFORMATION
  Report Type: Spontaneous
  Country: BR (occurrence: BR)
  Receive Date: 20240102
  Receipt Date: 20240102
  Transmission Date: 20240410
  Serious: Yes (Hospitalization)
  Sender: FDA-Public Use
  Company Number: BR-AMERICAN REGENT INC-2023003058

PATIENT
  Sex: Female
  Weight: 65 kg

DRUGS (1)
  1. VENOFER [Suspect]
     Active Substance: IRON SUCROSE
     Indication: Iron deficiency
     Dosage: 100 MG, 1 AMPOULE; AT LEAST ONCE A MONTH (100 MG,AT LEAST ONCE A MONTH)
     Dates: start: 2013, end: 202309

REACTIONS (3)
  - Cholecystectomy [Recovered/Resolved]
  - Appendicectomy [Recovered/Resolved]
  - Product availability issue [Unknown]

NARRATIVE: CASE EVENT DATE: 20140101
